FAERS Safety Report 20532227 (Version 1)
Quarter: 2022Q1

REPORT INFORMATION
  Report Type: Spontaneous
  Country: US (occurrence: None)
  Receive Date: 20220228
  Receipt Date: 20220228
  Transmission Date: 20220423
  Serious: Yes (unspecified)
  Sender: FDA-Public Use
  Company Number: None

PATIENT
  Age: 55 Year
  Sex: Female
  Weight: 53.1 kg

DRUGS (4)
  1. OCREVUS [Suspect]
     Active Substance: OCRELIZUMAB
     Indication: Multiple sclerosis
     Dosage: OTHER FREQUENCY : ONE TIME INFUSION;?
     Route: 041
     Dates: start: 20220224, end: 20220224
  2. Diphenhydramine 25 mg IVP [Concomitant]
     Dates: start: 20220224, end: 20220224
  3. Diphenhydramine 25 mg IVP [Concomitant]
     Dates: start: 20220224, end: 20220224
  4. Hydrocortisone 100 mh [Concomitant]
     Dates: start: 20220224, end: 20220224

REACTIONS (3)
  - Throat tightness [None]
  - Urticaria [None]
  - Infusion related reaction [None]

NARRATIVE: CASE EVENT DATE: 20220224
